FAERS Safety Report 8904019 (Version 1)
Quarter: 2012Q4

REPORT INFORMATION
  Report Type: 
  Country: DE (occurrence: DE)
  Receive Date: 20121112
  Receipt Date: 20121112
  Transmission Date: 20130627
  Serious: Yes (Life-Threatening, Hospitalization)
  Sender: FDA-Public Use
  Company Number: DE-ASTRAZENECA-2012SE84536

PATIENT
  Sex: Female

DRUGS (1)
  1. DISOPRIVAN [Suspect]
     Indication: LUNG OPERATION
     Route: 042

REACTIONS (2)
  - Epistaxis [Recovered/Resolved]
  - Shock haemorrhagic [Recovered/Resolved]
